FAERS Safety Report 7722924-X (Version None)
Quarter: 2011Q3

REPORT INFORMATION
  Report Type: 
  Country: None (occurrence: None)
  Receive Date: 20110901
  Receipt Date: 20110823
  Transmission Date: 20111222
  Serious: Yes (Other)
  Sender: FDA-Public Use
  Company Number: US-SP-2011-07513

PATIENT
  Age: 85 Year
  Sex: Male

DRUGS (8)
  1. PREDNISONE [Concomitant]
  2. FLOMAX [Concomitant]
  3. ADVIL LIQUI-GELS [Concomitant]
  4. THERACYS [Suspect]
     Indication: BLADDER CANCER
     Route: 043
     Dates: start: 20110603, end: 20110620
  5. ASPIRIN [Concomitant]
  6. TENORMIN [Concomitant]
  7. INTERFERON [Suspect]
     Indication: BLADDER CANCER
     Route: 043
     Dates: start: 20110603, end: 20110620
  8. OXYBUTYNIN [Concomitant]

REACTIONS (3)
  - BLADDER IRRITATION [None]
  - POLLAKIURIA [None]
  - INCORRECT DOSE ADMINISTERED [None]
